FAERS Safety Report 8847754 (Version 2)
Quarter: 2012Q4

REPORT INFORMATION
  Report Type: 
  Country: HU (occurrence: HU)
  Receive Date: 20121018
  Receipt Date: 20121023
  Transmission Date: 20130627
  Serious: Yes (Life-Threatening, Hospitalization)
  Sender: FDA-Public Use
  Company Number: HU-B.I. PHARMACEUTICALS,INC./RIDGEFIELD-2012-AP-00879AP

PATIENT
  Sex: Male

DRUGS (8)
  1. PRADAXA [Suspect]
     Indication: CEREBROVASCULAR ACCIDENT PROPHYLAXIS
     Dosage: 300 mg
     Dates: start: 201203
  2. PRADAXA [Suspect]
     Indication: ATRIAL FIBRILLATION
  3. CONCOR [Concomitant]
     Dosage: 5 mg
     Dates: start: 20120115
  4. CONCOR [Concomitant]
     Dosage: 2.5 mg
  5. ROSUVASTATIN SANDOZ [Concomitant]
     Dosage: 10 mg
  6. NOOTROPIL [Concomitant]
     Dosage: 2400 mg
  7. CONTROLOC [Concomitant]
     Dosage: 40 mg
  8. CONTROLOC [Concomitant]
     Dosage: 40 mg

REACTIONS (24)
  - Multi-organ failure [Unknown]
  - Abdominal discomfort [Unknown]
  - Decreased appetite [Unknown]
  - Vomiting [Unknown]
  - Abdominal pain [Unknown]
  - Jaundice [Unknown]
  - Asthenia [Unknown]
  - Nausea [Unknown]
  - Diarrhoea [Unknown]
  - Visual acuity reduced [Unknown]
  - Onychoclasis [Unknown]
  - Dry skin [Unknown]
  - Mucosal dryness [Unknown]
  - Weight decreased [Unknown]
  - Anaemia [Unknown]
  - Platelet count decreased [Unknown]
  - Liver disorder [Unknown]
  - Cholangitis [Unknown]
  - Hepatitis toxic [Unknown]
  - Biliary tract disorder [Unknown]
  - Cholecystitis [Unknown]
  - Pancreatitis [Unknown]
  - Malabsorption [Unknown]
  - Malnutrition [Unknown]
